FAERS Safety Report 8401778-2 (Version None)
Quarter: 2012Q2

REPORT INFORMATION
  Report Type: 
  Country: None (occurrence: None)
  Receive Date: 20120601
  Receipt Date: 20120525
  Transmission Date: 20120825
  Serious: Yes (Hospitalization)
  Sender: FDA-Public Use
  Company Number: US-B.I. PHARMACEUTICALS,INC./RIDGEFIELD-2012-BP-10073BP

PATIENT
  Age: 82 Year
  Sex: Female
  Weight: 92.98 kg

DRUGS (15)
  1. GUAIFENESIN [Concomitant]
  2. PRADAXA [Suspect]
     Indication: ATRIAL FIBRILLATION
     Dosage: 300 MG
     Dates: start: 20120101, end: 20120423
  3. LASIX [Concomitant]
  4. COZAAR [Concomitant]
  5. COLACE [Concomitant]
  6. CLARITIN [Concomitant]
  7. COLCHICINE [Concomitant]
  8. ASPIRIN [Concomitant]
  9. MILK OF MAGNESIA TAB [Concomitant]
  10. MIRALAX [Concomitant]
  11. ENABLEX [Concomitant]
  12. COREG [Concomitant]
  13. POTASSIUM CHLORIDE [Concomitant]
  14. MICRONASE [Concomitant]
  15. LEVOXYL [Concomitant]

REACTIONS (2)
  - HAEMATOMA [None]
  - TENDON RUPTURE [None]
